FAERS Safety Report 8435960-5 (Version None)
Quarter: 2012Q2

REPORT INFORMATION
  Report Type: 
  Country: None (occurrence: None)
  Receive Date: 20120614
  Receipt Date: 20120605
  Transmission Date: 20120825
  Serious: Yes (Hospitalization)
  Sender: FDA-Public Use
  Company Number: US-ASTRAZENECA-2012SE37755

PATIENT
  Age: 947 Month
  Sex: Female

DRUGS (13)
  1. TRAMADOL HCL [Suspect]
     Route: 048
  2. ASPIRIN [Concomitant]
     Route: 048
  3. MULTI-VITAMIN [Concomitant]
  4. PRILOSEC OTC [Concomitant]
     Route: 048
  5. WARFARIN SODIUM [Concomitant]
  6. AVAPRO [Concomitant]
     Route: 048
  7. METOPROLOL TARTRATE [Concomitant]
     Route: 048
  8. NOVOLIN 70/30 [Concomitant]
     Dosage: N/R 70/30, INJECT 65 IN THE MORNING AND 40 IN THE EVENING
  9. KEPPRA [Concomitant]
     Route: 048
  10. CRESTOR [Suspect]
     Route: 048
  11. LIGHT FAESOL [Concomitant]
     Dosage: TWO TIMES A DAY
     Route: 048
  12. ANTIBIOTIC [Concomitant]
  13. DIGOXIN [Concomitant]
     Route: 048

REACTIONS (5)
  - INFECTION [None]
  - DEMENTIA ALZHEIMER'S TYPE [None]
  - CONVULSION [None]
  - WHITE BLOOD CELL COUNT INCREASED [None]
  - BLOOD GLUCOSE INCREASED [None]
